FAERS Safety Report 10347301 (Version 1)
Quarter: 2014Q3

REPORT INFORMATION
  Report Type: Spontaneous
  Country: US (occurrence: US)
  Receive Date: 20140729
  Receipt Date: 20140729
  Transmission Date: 20150326
  Serious: No
  Sender: FDA-Public Use
  Company Number: US-PFIZER INC-2014208440

PATIENT
  Age: 51 Year
  Sex: Male
  Weight: 97.51 kg

DRUGS (3)
  1. ALLOPURINOL. [Interacting]
     Active Substance: ALLOPURINOL
     Indication: GOUT
     Dosage: 100 MG, UNK
  2. LYRICA [Suspect]
     Active Substance: PREGABALIN
     Indication: NERVE INJURY
     Dosage: UNK, 3X/DAY
     Dates: start: 201303
  3. VICTOZA [Interacting]
     Active Substance: LIRAGLUTIDE
     Indication: TYPE 2 DIABETES MELLITUS
     Dosage: UNK

REACTIONS (8)
  - Asthenia [Unknown]
  - Vision blurred [Unknown]
  - Anxiety [Unknown]
  - Nervousness [Unknown]
  - Drug interaction [Unknown]
  - Paraesthesia [Unknown]
  - Pruritus [Unknown]
  - Rash [Unknown]

NARRATIVE: CASE EVENT DATE: 2014
